FAERS Safety Report 13049811 (Version 2)
Quarter: 2016Q4

REPORT INFORMATION
  Report Type: Spontaneous
  Country: JP (occurrence: JP)
  Receive Date: 20161221
  Receipt Date: 20161230
  Transmission Date: 20170207
  Serious: Yes (Hospitalization, Other)
  Sender: FDA-Public Use
  Company Number: JP-UNITED THERAPEUTICS-UNT-2016-010698

PATIENT
  Age: 26 Year
  Sex: Male
  Weight: 62 kg

DRUGS (8)
  1. REMODULIN [Suspect]
     Active Substance: TREPROSTINIL
     Dosage: UNK
     Route: 041
     Dates: start: 20160929
  2. OPSUMIT [Suspect]
     Active Substance: MACITENTAN
     Indication: PORTOPULMONARY HYPERTENSION
     Dosage: 2 MG, UNK
     Route: 048
     Dates: start: 20161012
  3. REMODULIN [Suspect]
     Active Substance: TREPROSTINIL
     Indication: PORTOPULMONARY HYPERTENSION
     Dosage: 0.625 ?G/KG, CONTINUING
     Route: 058
     Dates: start: 20160622, end: 20160918
  4. REMODULIN [Suspect]
     Active Substance: TREPROSTINIL
     Dosage: UNK
     Route: 041
     Dates: start: 20160918, end: 20160926
  5. OPSUMIT [Suspect]
     Active Substance: MACITENTAN
     Dosage: UNK
     Route: 048
     Dates: start: 2016
  6. REMODULIN [Suspect]
     Active Substance: TREPROSTINIL
     Dosage: UNK
     Route: 058
     Dates: start: 20160927, end: 20160928
  7. OPSUMIT [Suspect]
     Active Substance: MACITENTAN
     Dosage: 1 MG, UNK
     Route: 048
     Dates: start: 20161030
  8. VENTAVIS [Concomitant]
     Active Substance: ILOPROST
     Indication: PORTOPULMONARY HYPERTENSION
     Dosage: UNK

REACTIONS (6)
  - Infusion site pain [Not Recovered/Not Resolved]
  - Infusion site induration [Not Recovered/Not Resolved]
  - Leukopenia [Unknown]
  - Pseudomembranous colitis [Unknown]
  - Nausea [Recovered/Resolved]
  - Thrombocytopenia [Not Recovered/Not Resolved]

NARRATIVE: CASE EVENT DATE: 20160623
